FAERS Safety Report 8605462 (Version 2)
Quarter: 2013Q1

REPORT INFORMATION
  Report Type: Spontaneous
  Country: US (occurrence: US)
  Receive Date: 20120608
  Receipt Date: 20130125
  Transmission Date: 20140127
  Serious: Yes (Hospitalization, Congenital Anomaly)
  Sender: FDA-Public Use
  Company Number: US-GLAXOSMITHKLINE-A0980480A

PATIENT
  Age: 0 Year
  Sex: Male

DRUGS (1)
  1. PAXIL [Suspect]
     Indication: POSTPARTUM DEPRESSION
     Dosage: 20MG PER DAY
     Route: 064
     Dates: start: 19930330

REACTIONS (6)
  - Multiple cardiac defects [Unknown]
  - Ventricular septal defect [Unknown]
  - Transposition of the great vessels [Unknown]
  - Double outlet right ventricle [Unknown]
  - Cerebral palsy [Unknown]
  - Foetal exposure during pregnancy [Unknown]
